FAERS Safety Report 14223842 (Version 5)
Quarter: 2018Q2

REPORT INFORMATION
  Report Type: Spontaneous
  Country: JP (occurrence: JP)
  Receive Date: 20171125
  Receipt Date: 20180601
  Transmission Date: 20180711
  Serious: Yes (Life-Threatening, Hospitalization)
  Sender: FDA-Public Use
  Company Number: PHHY2017JP172432

PATIENT
  Age: 75 Year
  Sex: Female

DRUGS (11)
  1. LAC B [Concomitant]
     Active Substance: BIFIDOBACTERIUM SPP.
     Indication: PRODUCT USED FOR UNKNOWN INDICATION
     Dosage: 9 G, UNK
     Route: 065
  2. MOSAPRIDE [Concomitant]
     Active Substance: MOSAPRIDE
     Indication: PRODUCT USED FOR UNKNOWN INDICATION
     Dosage: 45 MG, UNK
     Route: 048
  3. FUROSEMIDE. [Concomitant]
     Active Substance: FUROSEMIDE
     Indication: PRODUCT USED FOR UNKNOWN INDICATION
     Dosage: 0.25 G, UNK
     Route: 048
  4. INFLUENZA VACCINE [Concomitant]
     Active Substance: INFLUENZA VIRUS VACCINE
     Indication: PRODUCT USED FOR UNKNOWN INDICATION
     Dosage: UNK
     Route: 065
     Dates: start: 20171030
  5. NEXIUM [Concomitant]
     Active Substance: ESOMEPRAZOLE MAGNESIUM
     Indication: PRODUCT USED FOR UNKNOWN INDICATION
     Dosage: 20 MG, UNK
     Route: 048
  6. ROZEREM [Concomitant]
     Active Substance: RAMELTEON
     Indication: PRODUCT USED FOR UNKNOWN INDICATION
     Dosage: 8 MG, UNK
     Route: 048
  7. TRAZENTA [Concomitant]
     Active Substance: LINAGLIPTIN
     Indication: PRODUCT USED FOR UNKNOWN INDICATION
     Dosage: 5 MG, UNK
     Route: 048
  8. RECLAST [Suspect]
     Active Substance: ZOLEDRONIC ACID
     Indication: OSTEOPOROSIS
     Dosage: 5 MG, Q12MO
     Route: 041
     Dates: start: 20171016
  9. BISONO [Concomitant]
     Active Substance: BISOPROLOL
     Indication: PRODUCT USED FOR UNKNOWN INDICATION
     Dosage: 4 MG, UNK
     Route: 062
  10. REBAMIPIDE [Concomitant]
     Active Substance: REBAMIPIDE
     Indication: PRODUCT USED FOR UNKNOWN INDICATION
     Dosage: 4.5 DF, UNK
     Route: 048
  11. RACOL [Concomitant]
     Active Substance: AMINO ACIDS\DEXTROSE\ELECTROLYTES NOS
     Indication: PRODUCT USED FOR UNKNOWN INDICATION
     Dosage: 2700 G, UNK
     Route: 048

REACTIONS (1)
  - Cerebral infarction [Recovered/Resolved]

NARRATIVE: CASE EVENT DATE: 20171107
